FAERS Safety Report 16573735 (Version 1)
Quarter: 2019Q3

REPORT INFORMATION
  Report Type: Report from Study
  Country: US (occurrence: US)
  Receive Date: 20190715
  Receipt Date: 20190715
  Transmission Date: 20191004
  Serious: Yes (Hospitalization)
  Sender: FDA-Public Use
  Company Number: US-JNJFOC-20190128894

PATIENT
  Sex: Male

DRUGS (11)
  1. TAMSULOSIN [Concomitant]
     Active Substance: TAMSULOSIN
     Dosage: UNK
  2. VICTOZA [Concomitant]
     Active Substance: LIRAGLUTIDE
  3. ALLOPURINOL. [Concomitant]
     Active Substance: ALLOPURINOL
  4. DOCUSATE CALCIUM. [Concomitant]
     Active Substance: DOCUSATE CALCIUM
  5. OXYCODONE [Concomitant]
     Active Substance: OXYCODONE
  6. CARVEDILOL. [Concomitant]
     Active Substance: CARVEDILOL
  7. KLOR-CON [Concomitant]
     Active Substance: POTASSIUM CHLORIDE
     Dosage: UNK
  8. FINASTERIDE. [Concomitant]
     Active Substance: FINASTERIDE
  9. PRAVASTATIN. [Concomitant]
     Active Substance: PRAVASTATIN
  10. IMBRUVICA [Suspect]
     Active Substance: IBRUTINIB
     Indication: B-CELL SMALL LYMPHOCYTIC LYMPHOMA
     Dosage: 420 MG, QD
     Route: 048
     Dates: start: 20181227
  11. ASPIRIN. [Concomitant]
     Active Substance: ASPIRIN

REACTIONS (10)
  - Memory impairment [Unknown]
  - Dry skin [Unknown]
  - Petechiae [Unknown]
  - Product dose omission [Unknown]
  - Pruritus [Unknown]
  - Cardiac failure congestive [Recovering/Resolving]
  - Contusion [Unknown]
  - Fatigue [Unknown]
  - Rash macular [Unknown]
  - Peripheral swelling [Unknown]
